FAERS Safety Report 18880279 (Version 2)
Quarter: 2021Q2

REPORT INFORMATION
  Report Type: Spontaneous
  Country: CA (occurrence: CA)
  Receive Date: 20210211
  Receipt Date: 20210504
  Transmission Date: 20210717
  Serious: Yes (Other)
  Sender: FDA-Public Use
  Company Number: CA-SAMSUNG BIOEPIS-SB-2021-03036

PATIENT
  Age: 46 Year
  Sex: Male
  Weight: 80 kg

DRUGS (1)
  1. INFLIXIMAB [Suspect]
     Active Substance: INFLIXIMAB
     Indication: ANKYLOSING SPONDYLITIS
     Route: 042

REACTIONS (6)
  - Drug ineffective [Recovered/Resolved]
  - Weight decreased [Recovered/Resolved]
  - Off label use [Recovered/Resolved]
  - Pain [Recovered/Resolved]
  - Weight increased [Recovered/Resolved]
  - Intentional product use issue [Recovered/Resolved]
